FAERS Safety Report 9403204 (Version 1)
Quarter: 2013Q3

REPORT INFORMATION
  Report Type: Spontaneous
  Country: US (occurrence: US)
  Receive Date: 20130716
  Receipt Date: 20130716
  Transmission Date: 20140515
  Serious: Yes (Death, Hospitalization, Other)
  Sender: FDA-Public Use
  Company Number: PHHY2013US074136

PATIENT
  Age: 83 Year
  Sex: Female

DRUGS (1)
  1. ASCRIPTIN BUFFERED CAPS UNKNOWN FORMULA [Suspect]
     Indication: MIGRAINE
     Route: 048

REACTIONS (3)
  - Nosocomial infection [Fatal]
  - Hypertension [Unknown]
  - Incorrect drug administration duration [Unknown]
